FAERS Safety Report 11496064 (Version 1)
Quarter: 2015Q3

REPORT INFORMATION
  Report Type: Spontaneous
  Country: PL (occurrence: PL)
  Receive Date: 20150911
  Receipt Date: 20150911
  Transmission Date: 20151125
  Serious: Yes (Other)
  Sender: FDA-Public Use
  Company Number: PL-TEVA-591355ISR

PATIENT
  Age: 39 Year
  Sex: Male
  Weight: 80 kg

DRUGS (3)
  1. LOMUSTINE ^MEDAC^ [Suspect]
     Active Substance: LOMUSTINE
     Indication: BRAIN NEOPLASM MALIGNANT
     Route: 048
     Dates: start: 20141209
  2. VINCRISTINE TEVA [Suspect]
     Active Substance: VINCRISTINE
     Indication: BRAIN NEOPLASM MALIGNANT
     Route: 042
     Dates: start: 20141209
  3. PROCARBASINE [Suspect]
     Active Substance: PROCARBAZINE
     Indication: BRAIN NEOPLASM MALIGNANT
     Route: 048
     Dates: start: 20141209

REACTIONS (2)
  - Neutropenia [Unknown]
  - Hepatic failure [Unknown]

NARRATIVE: CASE EVENT DATE: 20150609
